FAERS Safety Report 16154549 (Version 1)
Quarter: 2019Q2

REPORT INFORMATION
  Report Type: Spontaneous
  Country: AU (occurrence: AU)
  Receive Date: 20190403
  Receipt Date: 20190403
  Transmission Date: 20190711
  Serious: Yes (Other)
  Sender: FDA-Public Use
  Company Number: AU-ELI_LILLY_AND_COMPANY-AU201901005434

PATIENT
  Sex: Male

DRUGS (9)
  1. ZYPREXA RELPREVV [Suspect]
     Active Substance: OLANZAPINE PAMOATE
     Indication: SCHIZOPHRENIA
     Dosage: 210 MG, EVERY TWO WEEKS
     Route: 030
     Dates: start: 20181031
  2. ZYPREXA RELPREVV [Suspect]
     Active Substance: OLANZAPINE PAMOATE
     Dosage: 405 MG, EVERY FOUR WEEKS
     Route: 030
     Dates: start: 20181212
  3. ZYPREXA RELPREVV [Suspect]
     Active Substance: OLANZAPINE PAMOATE
     Dosage: 300 MG, EVERY TWO WEEKS
     Route: 030
     Dates: start: 20190108
  4. ESOMEPRAZOLE. [Concomitant]
     Active Substance: ESOMEPRAZOLE MAGNESIUM
     Dosage: 20 MG, EACH EVENING
  5. COLECALCIFEROL [Concomitant]
     Active Substance: CHOLECALCIFEROL
     Dosage: 25 UG, DAILY
     Route: 065
  6. PERINDOPRIL [Concomitant]
     Active Substance: PERINDOPRIL
     Dosage: 10 MG, EACH MORNING
     Route: 065
  7. ARIPIPRAZOLE. [Concomitant]
     Active Substance: ARIPIPRAZOLE
     Dosage: 20 MG, EACH MORNING
     Route: 065
  8. FISH OIL [Concomitant]
     Active Substance: FISH OIL
     Dosage: 2 G, DAILY
     Route: 065
  9. FLUTICASONE;SALMETEROL [Concomitant]
     Dosage: 250/25MICROGRAMS ONE PUFF, BID
     Route: 048

REACTIONS (11)
  - Coma scale abnormal [Unknown]
  - Agitation [Unknown]
  - Tachycardia [Unknown]
  - Miosis [Unknown]
  - Sedation [Unknown]
  - Hypertension [Unknown]
  - Anticholinergic syndrome [Unknown]
  - Post-injection delirium sedation syndrome [Unknown]
  - Gait disturbance [Unknown]
  - Urinary retention [Unknown]
  - Dysarthria [Unknown]

NARRATIVE: CASE EVENT DATE: 20190108
